FAERS Safety Report 25588260 (Version 2)
Quarter: 2025Q3

REPORT INFORMATION
  Report Type: Spontaneous
  Country: US (occurrence: US)
  Receive Date: 20250722
  Receipt Date: 20250918
  Transmission Date: 20251021
  Serious: No
  Sender: ROCHE
  Company Number: US-ROCHE-10000341991

PATIENT
  Sex: Male

DRUGS (3)
  1. HEMLIBRA [Suspect]
     Active Substance: EMICIZUMAB-KXWH
     Indication: Factor VIII deficiency
     Dosage: STRENGTH-150MG/ML
     Route: 058
     Dates: start: 202412
  2. HEMOFIL [Concomitant]
     Active Substance: ANTIHEMOPHILIC FACTOR HUMAN
  3. JULUCA [Concomitant]
     Active Substance: DOLUTEGRAVIR SODIUM\RILPIVIRINE HYDROCHLORIDE

REACTIONS (3)
  - Haemorrhage [Recovered/Resolved]
  - Joint injury [Unknown]
  - Excessive exercise [Unknown]
